FAERS Safety Report 17282011 (Version 1)
Quarter: 2020Q1

REPORT INFORMATION
  Report Type: Spontaneous
  Country: US (occurrence: US)
  Receive Date: 20191230
  Receipt Date: 20191230
  Transmission Date: 20200409
  Serious: No
  Sender: FDA-Public Use
  Company Number: None

PATIENT
  Age: 44 Year
  Sex: Female

DRUGS (2)
  1. MYCOPHENOLIC TAB 360MG DR [Suspect]
     Active Substance: MYCOPHENOLIC ACID
     Dosage: ?          OTHER DOSE:2 TABLETS;?
     Route: 048
     Dates: start: 201703
  2. TACROLIMUS 1 MG [Concomitant]
     Active Substance: TACROLIMUS
     Dates: start: 20170717

REACTIONS (1)
  - Headache [None]

NARRATIVE: CASE EVENT DATE: 20191230
